FAERS Safety Report 7617919-0 (Version None)
Quarter: 2011Q3

REPORT INFORMATION
  Report Type: 
  Country: None (occurrence: None)
  Receive Date: 20110718
  Receipt Date: 20110705
  Transmission Date: 20111222
  Serious: Yes (Other)
  Sender: FDA-Public Use
  Company Number: PHHY2011NL60395

PATIENT
  Sex: Male

DRUGS (14)
  1. ANANDRON [Concomitant]
  2. CALCICHEW D3 [Concomitant]
  3. CARBASALATE [Concomitant]
  4. SLOW-K [Concomitant]
  5. OXYCODONE HCL [Concomitant]
  6. OXYCONTIN [Concomitant]
     Dosage: UNK UKN, PRN
  7. XALATAN [Concomitant]
  8. PANTOPRAZOLE SODIUM [Concomitant]
  9. LIPITOR [Concomitant]
  10. INSULIN [Concomitant]
  11. ZOMETA [Suspect]
     Indication: PROSTATE CANCER METASTATIC
     Dosage: 1 DF, EVERY 28 DAYS
     Route: 042
     Dates: start: 20110505
  12. METFORMIN HCL [Concomitant]
  13. METOPROLOL TARTRATE [Concomitant]
  14. MOVIPREP [Concomitant]

REACTIONS (3)
  - MALAISE [None]
  - BONE PAIN [None]
  - GENERAL PHYSICAL HEALTH DETERIORATION [None]
